FAERS Safety Report 8071352-9 (Version None)
Quarter: 2012Q1

REPORT INFORMATION
  Report Type: 
  Country: None (occurrence: None)
  Receive Date: 20120125
  Receipt Date: 20120119
  Transmission Date: 20120608
  Serious: Yes (Other)
  Sender: FDA-Public Use
  Company Number: US-PFIZER INC-2012016119

PATIENT
  Sex: Female
  Weight: 58.1 kg

DRUGS (2)
  1. PREMARIN [Suspect]
     Indication: POSTOPERATIVE CARE
     Dosage: 0.625 MG, 1X/DAY
     Route: 048
     Dates: start: 20000101
  2. PREMARIN [Suspect]
     Dosage: UNK
     Route: 048
     Dates: end: 20120101

REACTIONS (5)
  - PAIN IN EXTREMITY [None]
  - NEOPLASM MALIGNANT [None]
  - HEADACHE [None]
  - HOT FLUSH [None]
  - FEELING ABNORMAL [None]
